FAERS Safety Report 5109789-X (Version None)
Quarter: 2006Q3

REPORT INFORMATION
  Report Type: 
  Country: None (occurrence: None)
  Receive Date: 20060915
  Receipt Date: 20060821
  Transmission Date: 20061208
  Serious: Yes (Other)
  Sender: FDA-Public Use
  Company Number: 2006102283

PATIENT
  Age: 29 Year
  Sex: Male

DRUGS (5)
  1. PREDNISOLONE [Suspect]
     Indication: TESTIS CANCER
  2. BLEOMYCIN [Suspect]
     Indication: TESTIS CANCER
     Dosage: 30 I.U. (CYCLE)
  3. CISPLATIN [Suspect]
     Indication: TESTIS CANCER
     Dosage: 20 MG/M2
  4. ETOPOSIDE [Suspect]
     Indication: TESTIS CANCER
     Dosage: 100 MG/M2
  5. DEXAMETHASONE TAB [Suspect]
     Indication: TESTIS CANCER
     Dosage: 4 MG (DAY)

REACTIONS (1)
  - OSTEONECROSIS [None]
